FAERS Safety Report 7775516-0 (Version None)
Quarter: 2011Q3

REPORT INFORMATION
  Report Type: 
  Country: None (occurrence: None)
  Receive Date: 20110923
  Receipt Date: 20110920
  Transmission Date: 20111222
  Serious: Yes (Hospitalization)
  Sender: FDA-Public Use
  Company Number: US-ROCHE-773671

PATIENT
  Sex: Male
  Weight: 51 kg

DRUGS (19)
  1. BEVACIZUMAB [Suspect]
     Dosage: MAY RESTART ON 10 MAY 2011
     Route: 065
     Dates: start: 20110315, end: 20110426
  2. CAPECITABINE [Suspect]
     Dosage: 2 WKS ON 1 OFF
     Route: 065
     Dates: end: 20110919
  3. LORAZEPAM [Concomitant]
  4. OXALIPLATIN [Suspect]
     Indication: OESOPHAGEAL CANCER METASTATIC
     Route: 065
     Dates: start: 20110315, end: 20110913
  5. COMPAZINE [Concomitant]
  6. DEXAMETHASONE [Concomitant]
  7. ONDANSETRON HCL [Concomitant]
  8. MIRTAZAPINE [Concomitant]
  9. TRASTUZUMAB [Suspect]
     Indication: OESOPHAGEAL CANCER METASTATIC
     Route: 065
     Dates: start: 20110315, end: 20110405
  10. TRASTUZUMAB [Suspect]
     Route: 065
     Dates: start: 20110426, end: 20110913
  11. METOPROLOL TARTRATE [Concomitant]
  12. CALCIUM CARBONATE [Concomitant]
  13. CITALOPRAM HYDROBROMIDE [Concomitant]
  14. LOMOTIL [Concomitant]
  15. METOCLOPRAMIDE HYDROCHLORIDE [Concomitant]
  16. BEVACIZUMAB [Suspect]
     Indication: OESOPHAGEAL CANCER METASTATIC
     Route: 065
     Dates: start: 20110308
  17. BEVACIZUMAB [Suspect]
     Route: 065
     Dates: start: 20110503, end: 20110913
  18. CAPECITABINE [Suspect]
     Indication: OESOPHAGEAL CANCER METASTATIC
     Dosage: 2 WKS ON 1 OFF
     Route: 065
     Dates: start: 20110315, end: 20110405
  19. LANSOPRAZOLE [Concomitant]

REACTIONS (3)
  - DEHYDRATION [None]
  - DIARRHOEA [None]
  - PALMAR ERYTHEMA [None]
